FAERS Safety Report 7790101-2 (Version None)
Quarter: 2011Q3

REPORT INFORMATION
  Report Type: 
  Country: None (occurrence: None)
  Receive Date: 20110930
  Receipt Date: 20110721
  Transmission Date: 20111222
  Serious: No
  Sender: FDA-Public Use
  Company Number: US-ASTRAZENECA-2011SE43866

PATIENT
  Age: 72 Year
  Sex: Female

DRUGS (3)
  1. FASLODEX [Suspect]
     Indication: BREAST CANCER
     Route: 030
     Dates: start: 20110715
  2. UNSPECIFIED CARDIOVASCULAR MEDS [Concomitant]
     Indication: CARDIOVASCULAR DISORDER
  3. ARIMIDEX [Suspect]
     Indication: BREAST CANCER
     Route: 048
     Dates: start: 20070101, end: 20110601

REACTIONS (2)
  - PRURITUS GENERALISED [None]
  - DRUG INEFFECTIVE [None]
